FAERS Safety Report 8086181-X (Version None)
Quarter: 2012Q1

REPORT INFORMATION
  Report Type: 
  Country: None (occurrence: None)
  Receive Date: 20120128
  Receipt Date: 20110415
  Transmission Date: 20120608
  Serious: No
  Sender: FDA-Public Use
  Company Number: US-ABBOTT-11P-163-0719571-00

PATIENT
  Age: 27 Year
  Sex: Male

DRUGS (3)
  1. IBUPROFEN [Concomitant]
     Indication: TOOTH EXTRACTION
  2. IBUPROFEN [Concomitant]
     Indication: PAIN
  3. HUMIRA [Suspect]
     Indication: PSORIATIC ARTHROPATHY
     Dates: start: 20110201

REACTIONS (4)
  - PURULENT DISCHARGE [None]
  - GINGIVITIS [None]
  - WISDOM TEETH REMOVAL [None]
  - GINGIVAL ERYTHEMA [None]
